FAERS Safety Report 24007570 (Version 3)
Quarter: 2024Q3

REPORT INFORMATION
  Report Type: Report from Study
  Country: US (occurrence: US)
  Receive Date: 20240625
  Receipt Date: 20240715
  Transmission Date: 20241016
  Serious: Yes (Death)
  Sender: ROCHE
  Company Number: US-ROCHE-3545137

PATIENT
  Age: 90 Year
  Sex: Female

DRUGS (8)
  1. ESBRIET [Suspect]
     Active Substance: PIRFENIDONE
     Indication: Idiopathic pulmonary fibrosis
     Route: 048
  2. ESBRIET [Suspect]
     Active Substance: PIRFENIDONE
     Indication: Chronic obstructive pulmonary disease
     Route: 048
  3. ESBRIET [Suspect]
     Active Substance: PIRFENIDONE
     Indication: COVID-19
  4. ESBRIET [Suspect]
     Active Substance: PIRFENIDONE
     Indication: Dyspnoea
  5. ESBRIET [Suspect]
     Active Substance: PIRFENIDONE
     Indication: Pneumonia streptococcal
  6. ELIPTA [Concomitant]
  7. PREDNISONE [Concomitant]
     Active Substance: PREDNISONE
  8. IPRATROPIUM [Concomitant]
     Active Substance: IPRATROPIUM

REACTIONS (2)
  - Death [Fatal]
  - Off label use [Unknown]
